FAERS Safety Report 6032744-2 (Version None)
Quarter: 2009Q1

REPORT INFORMATION
  Report Type: 
  Country: None (occurrence: None)
  Receive Date: 20090109
  Receipt Date: 20090102
  Transmission Date: 20090719
  Serious: Yes (Other)
  Sender: FDA-Public Use
  Company Number: GB-ROCHE-606439

PATIENT
  Sex: Female
  Weight: 119.8 kg

DRUGS (6)
  1. ORLISTAT [Suspect]
     Indication: OBESITY
     Route: 048
     Dates: start: 20080620
  2. ASPIRIN [Concomitant]
     Indication: THROMBOSIS PROPHYLAXIS
     Route: 048
     Dates: start: 20080101
  3. METFORMIN HCL [Concomitant]
     Route: 048
     Dates: start: 20080101
  4. LIPITOR [Concomitant]
     Route: 048
     Dates: start: 20080101
  5. DICLOFENAC SODIUM [Concomitant]
     Dosage: DOASAGE REPORTED: AS REQUIRED
     Route: 048
  6. GABAPENTIN [Concomitant]
     Dosage: DOSAGE REPORTED: UNKNOWN
     Route: 048

REACTIONS (3)
  - BREAST MASS [None]
  - LOWER RESPIRATORY TRACT INFECTION [None]
  - URINARY TRACT INFECTION [None]
